FAERS Safety Report 4579516-3 (Version None)
Quarter: 2005Q1

REPORT INFORMATION
  Report Type: 
  Country: None (occurrence: None)
  Receive Date: 20050209
  Receipt Date: 20050121
  Transmission Date: 20050727
  Serious: Yes (Death, Hospitalization)
  Sender: FDA-Public Use
  Company Number: AU_050108318

PATIENT
  Age: 47 Year
  Sex: Male

DRUGS (12)
  1. XIGRIS [Suspect]
     Indication: SEPSIS
     Dosage: 24 UG/KG/HR
  2. NORADRENALINE [Concomitant]
  3. MORPHINE [Concomitant]
  4. FRUSEMIDE [Concomitant]
  5. SODIUM BICARBONATE IN PLASTIC CONTAINER [Concomitant]
  6. THIAMINE [Concomitant]
  7. ZANTAC [Concomitant]
  8. VENTOLIN (SALBUTAMOL SULFATE) [Concomitant]
  9. ATROVENT [Concomitant]
  10. MAXOLON [Concomitant]
  11. ERYTHROMYCIN [Concomitant]
  12. FLAGYL [Concomitant]

REACTIONS (2)
  - MULTI-ORGAN FAILURE [None]
  - SEPTIC SHOCK [None]
